FAERS Safety Report 8875708 (Version 1)
Quarter: 2012Q4

REPORT INFORMATION
  Report Type: 
  Country: US (occurrence: US)
  Receive Date: 20121030
  Receipt Date: 20121030
  Transmission Date: 20130627
  Serious: Yes (Hospitalization)
  Sender: FDA-Public Use
  Company Number: US-BAYER-2012-112570

PATIENT
  Age: 39 Year
  Sex: Female

DRUGS (47)
  1. YAZ [Suspect]
  2. OCELLA [Suspect]
  3. BEYAZ [Suspect]
  4. DESYREL [Concomitant]
     Dosage: UNK
     Dates: start: 20111115
  5. ACETAMINOPHEN W/OXYCODONE [Concomitant]
  6. SUMATRIPTAN [Concomitant]
  7. OMEPRAZOLE [Concomitant]
  8. ONDANSETRON HYDROCHLORIDE [Concomitant]
  9. PEG 3350 AND ELECTROLYTES [Concomitant]
  10. KETOROLAC [Concomitant]
  11. LEVOFLOXACIN [Concomitant]
  12. ASACOL [Concomitant]
  13. IBUPROFEN [Concomitant]
  14. DIAZEPAM [Concomitant]
  15. CEPHALEXIN [Concomitant]
  16. ALPRAZOLAM [Concomitant]
  17. BENZONATATE [Concomitant]
  18. PHENAZOPYRIDINE [Concomitant]
  19. METRONIDAZOLE [Concomitant]
  20. HYDROCODONE W/ACETAMINOPHEN [Concomitant]
  21. METHYLPREDNISOLONE [Concomitant]
  22. ALBUTEROL [Concomitant]
  23. SERTRALINE [Concomitant]
  24. TRAZODONE [Concomitant]
  25. ORPHENADRINE [Concomitant]
  26. AZITHROMYCIN [Concomitant]
  27. ACETAMINOPHEN W/CODEINE [Concomitant]
  28. FLUTICASONE [Concomitant]
  29. TOPIRAMATE [Concomitant]
  30. BUTALBITAL, ACETAMINOPHEN + CAFFEINE [Concomitant]
  31. PROCHLORPERAZINE [Concomitant]
  32. FAMOTIDINE [Concomitant]
  33. VICODIN [Concomitant]
     Dosage: UNK
     Dates: start: 20111115
  34. FIORICET [Concomitant]
     Dosage: UNK
     Dates: start: 20111115
  35. PRILOSEC [Concomitant]
     Dosage: UNK
     Dates: start: 20111115
  36. XANAX [Concomitant]
     Dosage: UNK
     Dates: start: 20111115
  37. ZOLOFT [Concomitant]
     Dosage: UNK
     Dates: start: 20111115
  38. ZOFRAN [Concomitant]
     Dosage: UNK
     Dates: start: 20111115
  39. DILAUDID [Concomitant]
     Dosage: UNK
     Dates: start: 20111115
  40. KEFLEX [Concomitant]
     Dosage: UNK
     Dates: start: 20120116
  41. BENADRYL [Concomitant]
     Dosage: UNK
     Dates: start: 20120116
  42. PEPCID [Concomitant]
     Dosage: UNK
     Dates: start: 20120116
  43. DESERIL [Concomitant]
     Dosage: UNK
     Dates: start: 20120116
  44. NORFLEX [Concomitant]
     Dosage: UNK
     Dates: start: 20120116
  45. TOPAMAX [Concomitant]
     Dosage: UNK
     Dates: start: 20120116
  46. REGLAN [Concomitant]
     Dosage: UNK
     Dates: start: 20120116
  47. TORADOL [Concomitant]
     Dosage: UNK
     Dates: start: 20120116

REACTIONS (1)
  - Deep vein thrombosis [None]
